FAERS Safety Report 10250132 (Version 1)
Quarter: 2014Q2

REPORT INFORMATION
  Report Type: Spontaneous
  Country: US (occurrence: US)
  Receive Date: 20140620
  Receipt Date: 20140620
  Transmission Date: 20141212
  Serious: No
  Sender: FDA-Public Use
  Company Number: US-BRISTOL-MYERS SQUIBB COMPANY-20682274

PATIENT
  Age: 81 Year
  Sex: Female

DRUGS (4)
  1. ELIQUIS [Suspect]
     Dosage: 2.5 MG TWICE A DAY
  2. VASOTEC [Concomitant]
  3. METOPROLOL [Concomitant]
  4. ULORIC [Concomitant]

REACTIONS (2)
  - Dizziness [Unknown]
  - Medication error [Unknown]
